FAERS Safety Report 15845915 (Version 1)
Quarter: 2019Q1

REPORT INFORMATION
  Report Type: Spontaneous
  Country: US (occurrence: US)
  Receive Date: 20190120
  Receipt Date: 20190120
  Transmission Date: 20190417
  Serious: No
  Sender: FDA-Public Use
  Company Number: US-DEXPHARM-20180351

PATIENT
  Age: 61 Year
  Sex: Male
  Weight: 78.91 kg

DRUGS (8)
  1. OMEPRAZOLE DELAYED RELEASE TABLETS 20 MG [Suspect]
     Active Substance: OMEPRAZOLE
     Dosage: 20 MG, QD
     Route: 048
     Dates: start: 201805, end: 201805
  2. OMEPRAZOLE DELAYED RELEASE TABLETS 20 MG [Suspect]
     Active Substance: OMEPRAZOLE
     Indication: ABDOMINAL DISTENSION
     Dosage: 20 MG, QD
     Route: 048
     Dates: start: 201801, end: 201801
  3. LOSARTAN. [Concomitant]
     Active Substance: LOSARTAN
     Indication: HYPERTENSION
     Dosage: UNK
     Route: 065
  4. METOPROLOL. [Concomitant]
     Active Substance: METOPROLOL
     Indication: HYPERTENSION
     Dosage: UNK
     Route: 065
  5. ATORVASTATIN [Concomitant]
     Active Substance: ATORVASTATIN
     Indication: BLOOD CHOLESTEROL INCREASED
     Dosage: UNK
     Route: 065
  6. NITROGLYCERIN. [Concomitant]
     Active Substance: NITROGLYCERIN
     Indication: CARDIAC DISORDER
     Dosage: UNK
     Route: 065
  7. ISOSORBIDE. [Concomitant]
     Active Substance: ISOSORBIDE
     Indication: CARDIAC DISORDER
     Dosage: UNK
     Route: 065
     Dates: start: 2018
  8. TAMSULOSIN [Concomitant]
     Active Substance: TAMSULOSIN
     Indication: PROSTATOMEGALY
     Dosage: UNK
     Route: 065

REACTIONS (2)
  - Therapeutic response unexpected [Recovered/Resolved]
  - Rebound effect [Not Recovered/Not Resolved]

NARRATIVE: CASE EVENT DATE: 201801
